FAERS Safety Report 10404253 (Version 1)
Quarter: 2014Q1

REPORT INFORMATION
  Report Type: Spontaneous
  Country: US (occurrence: None)
  Receive Date: 20140214
  Receipt Date: 20140214
  Transmission Date: 20141002
  Serious: No
  Sender: FDA-Public Use
  Company Number: A-US2014-93452

PATIENT
  Age: 77 Year
  Sex: Female

DRUGS (2)
  1. OPSUMIT [Suspect]
     Indication: PULMONARY ARTERIAL HYPERTENSION
     Route: 048
  2. REVATIO (SILDENAFIL CITRATE) [Concomitant]

REACTIONS (2)
  - Pruritus [None]
  - Liver function test abnormal [None]
